FAERS Safety Report 18552122 (Version 1)
Quarter: 2020Q4

REPORT INFORMATION
  Report Type: Other
  Country: US (occurrence: US)
  Receive Date: 20201126
  Receipt Date: 20201126
  Transmission Date: 20210114
  Serious: Yes (Other)
  Sender: FDA-Public Use
  Company Number: US-ROCHE-2716520

PATIENT
  Sex: Male

DRUGS (11)
  1. METHYLPHENIDATE. [Concomitant]
     Active Substance: METHYLPHENIDATE
     Dosage: 1-2 TABLETS AFTERNOON FOR SEVERE FATIGUE 30 MINUTES BEFORE MEALS
     Route: 048
  2. NICOTINE. [Concomitant]
     Active Substance: NICOTINE
     Dosage: CHEWED PRN
     Route: 048
  3. TOLTERODINE [Concomitant]
     Active Substance: TOLTERODINE
     Dosage: EXTENDED RELEASE, PRN
     Route: 048
  4. METHYLPREDNISOLONE. [Concomitant]
     Active Substance: METHYLPREDNISOLONE
  5. OCREVUS [Suspect]
     Active Substance: OCRELIZUMAB
     Indication: RELAPSING MULTIPLE SCLEROSIS
     Route: 042
     Dates: start: 20170920
  6. DALFAMPRIDINE. [Concomitant]
     Active Substance: DALFAMPRIDINE
     Dosage: EXTENDED RELEASE
     Route: 048
  7. ASCORBIC ACID. [Concomitant]
     Active Substance: ASCORBIC ACID
     Route: 048
  8. CHOLECALCIFEROL [Concomitant]
     Active Substance: CHOLECALCIFEROL
     Dosage: 10000 UNIT
     Route: 048
  9. NALTREXONE [Concomitant]
     Active Substance: NALTREXONE
     Route: 048
  10. FISH OIL [Concomitant]
     Active Substance: FISH OIL
     Route: 048
  11. BACLOFEN. [Concomitant]
     Active Substance: BACLOFEN
     Dosage: AT BEDTIME
     Route: 048

REACTIONS (5)
  - COVID-19 [Unknown]
  - Fatigue [Unknown]
  - Malaise [Unknown]
  - Quadriplegia [Unknown]
  - Neurogenic bladder [Unknown]
